FAERS Safety Report 13988567 (Version 1)
Quarter: 2017Q3

REPORT INFORMATION
  Report Type: Report from Study
  Country: CO (occurrence: CO)
  Receive Date: 20170919
  Receipt Date: 20170919
  Transmission Date: 20171128
  Serious: Yes (Other)
  Sender: FDA-Public Use
  Company Number: CO-ACTELION-A-NJ2016-144331

PATIENT
  Age: 51 Year
  Sex: Female

DRUGS (7)
  1. LOSARTAN. [Concomitant]
     Active Substance: LOSARTAN
  2. HYDROCHLOROTHIAZIDE. [Concomitant]
     Active Substance: HYDROCHLOROTHIAZIDE
  3. VENTAVIS [Suspect]
     Active Substance: ILOPROST
     Dosage: 10 MCG, 6X/DAY
     Route: 055
     Dates: start: 20140704
  4. VENTAVIS [Suspect]
     Active Substance: ILOPROST
     Indication: PULMONARY ARTERIAL HYPERTENSION
     Dosage: 5 MCG, 6X/DAY
     Route: 055
     Dates: start: 20140704, end: 20160601
  5. SPIRONOLACTONE. [Concomitant]
     Active Substance: SPIRONOLACTONE
  6. CARVEDILOL. [Concomitant]
     Active Substance: CARVEDILOL
  7. ACID ACETYLSALICYLIC [Concomitant]

REACTIONS (7)
  - Blood cholesterol increased [Recovering/Resolving]
  - Pain [Not Recovered/Not Resolved]
  - Dizziness [Unknown]
  - Depressed mood [Not Recovered/Not Resolved]
  - Product use issue [Unknown]
  - Product supply issue [Unknown]
  - Syncope [Recovered/Resolved]

NARRATIVE: CASE EVENT DATE: 201610
